FAERS Safety Report 7334374-9 (Version None)
Quarter: 2011Q1

REPORT INFORMATION
  Report Type: 
  Country: None (occurrence: None)
  Receive Date: 20110307
  Receipt Date: 20110221
  Transmission Date: 20110831
  Serious: Yes (Other)
  Sender: FDA-Public Use
  Company Number: PHHY2011DE17479

PATIENT
  Sex: Male

DRUGS (1)
  1. TEGRETOL-XR [Suspect]
     Dosage: 1200 MG, DAY
     Route: 048
     Dates: start: 20100201

REACTIONS (2)
  - EPILEPSY [None]
  - DRUG LEVEL DECREASED [None]
